FAERS Safety Report 14472792 (Version 1)
Quarter: 2018Q1

REPORT INFORMATION
  Report Type: Spontaneous
  Country: US (occurrence: US)
  Receive Date: 20180201
  Receipt Date: 20180201
  Transmission Date: 20180509
  Serious: No
  Sender: FDA-Public Use
  Company Number: US-KADMON PHARMACEUTICALS, LLC-KAD201708-000964

PATIENT
  Age: 58 Year
  Sex: Male

DRUGS (5)
  1. RIBASPHERE RIBAPAK [Suspect]
     Active Substance: RIBAVIRIN
     Indication: CHRONIC HEPATITIS C
     Dates: start: 2009
  2. RIBASPHERE RIBAPAK [Suspect]
     Active Substance: RIBAVIRIN
     Dates: start: 20140128
  3. PEGASYS [Suspect]
     Active Substance: PEGINTERFERON ALFA-2A
     Route: 058
     Dates: start: 20140128
  4. SOFOSBUVIR [Suspect]
     Active Substance: SOFOSBUVIR
     Dates: start: 20140128
  5. PEGASYS [Suspect]
     Active Substance: PEGINTERFERON ALFA-2A
     Indication: CHRONIC HEPATITIS C
     Dosage: INJECTION
     Dates: start: 2009

REACTIONS (4)
  - Injection site urticaria [Recovering/Resolving]
  - Anaemia [Unknown]
  - Skin hypertrophy [Unknown]
  - Treatment failure [Unknown]

NARRATIVE: CASE EVENT DATE: 2009
